FAERS Safety Report 17520448 (Version 1)
Quarter: 2020Q1

REPORT INFORMATION
  Report Type: Spontaneous
  Country: US (occurrence: US)
  Receive Date: 20200302
  Receipt Date: 20200302
  Transmission Date: 20200409
  Serious: Yes (Hospitalization)
  Sender: FDA-Public Use
  Company Number: None

PATIENT
  Age: 68 Year
  Sex: Male

DRUGS (1)
  1. VANCOMYCIN (VANCOMYCIN HCL 100GM/VIL INJ) [Suspect]
     Active Substance: VANCOMYCIN
     Indication: SURGERY
     Route: 042
     Dates: start: 20200123, end: 20200123

REACTIONS (1)
  - Anaphylactic reaction [None]

NARRATIVE: CASE EVENT DATE: 20200123
